FAERS Safety Report 23878958 (Version 1)
Quarter: 2024Q2

REPORT INFORMATION
  Report Type: Report from Study
  Country: US (occurrence: US)
  Receive Date: 20240521
  Receipt Date: 20240521
  Transmission Date: 20240716
  Serious: Yes (Hospitalization)
  Sender: FDA-Public Use
  Company Number: US-JNJFOC-20231038812

PATIENT
  Age: 44 Year
  Sex: Male
  Weight: 60.6 kg

DRUGS (9)
  1. TALQUETAMAB [Suspect]
     Active Substance: TALQUETAMAB
     Indication: Plasma cell myeloma
     Route: 058
     Dates: start: 20230518, end: 20230927
  2. ACYCLOVIR [Concomitant]
     Active Substance: ACYCLOVIR
     Indication: Antiviral prophylaxis
     Route: 048
     Dates: start: 2017
  3. TRAMADOL [Concomitant]
     Active Substance: TRAMADOL\TRAMADOL HYDROCHLORIDE
     Indication: Pain
     Route: 048
     Dates: start: 20230905
  4. OXYCODONE [Concomitant]
     Active Substance: OXYCODONE\OXYCODONE HYDROCHLORIDE
     Route: 048
     Dates: start: 20220614
  5. SODIUM FLUORIDE\SODIUM MONOFLUOROPHOSPHATE [Concomitant]
     Active Substance: SODIUM FLUORIDE\SODIUM MONOFLUOROPHOSPHATE
     Indication: Dysgeusia
     Route: 048
     Dates: start: 20230526
  6. ATOVAQUONE [Concomitant]
     Active Substance: ATOVAQUONE
     Indication: Antifungal prophylaxis
     Route: 048
     Dates: start: 2020
  7. CHOLECALCIFEROL [Concomitant]
     Active Substance: CHOLECALCIFEROL
     Indication: Supplementation therapy
     Route: 048
     Dates: start: 20200625
  8. ONDANSETRON [Concomitant]
     Active Substance: ONDANSETRON
     Indication: Nausea
     Route: 048
     Dates: start: 20220216
  9. NEURONTIN [Concomitant]
     Active Substance: GABAPENTIN
     Indication: Muscle spasms
     Route: 048
     Dates: start: 20220124

REACTIONS (4)
  - Dizziness [Not Recovered/Not Resolved]
  - Gait disturbance [Not Recovered/Not Resolved]
  - Dehydration [Not Recovered/Not Resolved]
  - Diplopia [Unknown]

NARRATIVE: CASE EVENT DATE: 20231010
